FAERS Safety Report 5408775-X (Version None)
Quarter: 2007Q3

REPORT INFORMATION
  Report Type: 
  Country: None (occurrence: None)
  Receive Date: 20070808
  Receipt Date: 20070727
  Transmission Date: 20080115
  Serious: Yes (Other)
  Sender: FDA-Public Use
  Company Number: US-PFIZER INC-2007050586

PATIENT
  Sex: Male
  Weight: 90.3 kg

DRUGS (5)
  1. CHANTIX [Suspect]
     Indication: NICOTINE DEPENDENCE
  2. VERELAN PM [Concomitant]
     Dosage: TEXT:300
  3. ATACAND [Concomitant]
  4. HYDROCHLOROTHIAZIDE [Concomitant]
  5. TOPROL-XL [Concomitant]

REACTIONS (5)
  - AMPUTATION [None]
  - HYPERTENSION [None]
  - HYPOTONIA [None]
  - NECROSIS [None]
  - PERIPHERAL VASCULAR DISORDER [None]
